FAERS Safety Report 8163641-4 (Version None)
Quarter: 2012Q1

REPORT INFORMATION
  Report Type: 
  Country: None (occurrence: None)
  Receive Date: 20120224
  Receipt Date: 20120217
  Transmission Date: 20120608
  Serious: Yes (Hospitalization)
  Sender: FDA-Public Use
  Company Number: US-PFIZER INC-2012043994

PATIENT
  Sex: Female
  Weight: 78.86 kg

DRUGS (11)
  1. OXYGEN [Suspect]
     Indication: PULMONARY HYPERTENSION
     Dosage: UNK
     Route: 045
  2. CELEBREX [Suspect]
     Indication: ADENOMATOUS POLYPOSIS COLI
     Dosage: UNK
     Route: 048
     Dates: end: 20110801
  3. TYVASO [Suspect]
     Indication: PULMONARY ARTERIAL HYPERTENSION
     Dosage: 6 MG, 4X/DAY, 36 BREATHS
     Route: 055
     Dates: start: 20110405
  4. DETROL [Concomitant]
     Dosage: 1 TABLET
     Route: 048
  5. TRACLEER [Concomitant]
  6. REVATIO [Suspect]
     Indication: PULMONARY ARTERIAL HYPERTENSION
     Dosage: 120 MG, 1 D
     Dates: start: 20050101
  7. METHOTREXATE [Concomitant]
     Indication: RENAL CANCER
     Dosage: 10 MG, 1 D
     Route: 048
     Dates: start: 20070801
  8. AMBRISENTAN [Suspect]
     Indication: PULMONARY ARTERIAL HYPERTENSION
     Dosage: 10 MG, 1 D
     Dates: start: 20091101
  9. ETANERCEPT [Concomitant]
     Indication: RHEUMATOID ARTHRITIS
     Dosage: INJECTION, 1 WEEK
     Route: 030
     Dates: start: 20070101
  10. NEXIUM [Concomitant]
     Indication: GASTROOESOPHAGEAL REFLUX DISEASE
     Dosage: UNK
     Route: 048
  11. VITAMIN D [Concomitant]
     Dosage: 1 TABLET
     Route: 048
     Dates: start: 20080101

REACTIONS (2)
  - UPPER GASTROINTESTINAL HAEMORRHAGE [None]
  - RESPIRATORY TRACT HAEMORRHAGE [None]
